FAERS Safety Report 8314538-8 (Version None)
Quarter: 2012Q2

REPORT INFORMATION
  Report Type: 
  Country: None (occurrence: None)
  Receive Date: 20120426
  Receipt Date: 20120419
  Transmission Date: 20120825
  Serious: Yes (Death, Other)
  Sender: FDA-Public Use
  Company Number: TR-BAYER-2012-037700

PATIENT
  Age: 31 Year
  Sex: Male

DRUGS (11)
  1. CIPROFLOXACIN [Suspect]
     Indication: ANTIBIOTIC THERAPY
  2. PIPERACILLIN SODIUM [Suspect]
     Indication: ANTIBIOTIC PROPHYLAXIS
  3. CIPROFLOXACIN [Suspect]
     Indication: SMALL INTESTINAL RESECTION
     Dosage: 200 MG, BID
     Route: 042
  4. TACROLIMUS [Suspect]
     Indication: TRANSPLANT REJECTION
     Dosage: INCREASED DOSE
  5. MYCOPHENOLATE MOFETIL [Suspect]
     Indication: IMMUNOSUPPRESSION
     Dosage: 720 MG, BID
  6. FLUCONAZOLE [Concomitant]
     Route: 042
  7. PREDNISOLONE [Suspect]
     Dosage: 40 MG, QD
     Route: 042
  8. BASILIXIMAB [Suspect]
     Indication: IMMUNOSUPPRESSION
     Dosage: 20 MG, QD, ON DAYS 0 AND 4
  9. PREDNISOLONE [Suspect]
     Indication: IMMUNOSUPPRESSION
     Dosage: 500 MG, ONCE, ON DAY 1
     Route: 042
  10. PREDNISOLONE [Suspect]
     Dosage: 500 MG, ONCE, ON DAY 2
     Route: 042
  11. TACROLIMUS [Suspect]
     Indication: IMMUNOSUPPRESSION
     Dosage: 5 MG, BID

REACTIONS (4)
  - GASTROINTESTINAL CANDIDIASIS [None]
  - NEUTROPENIA [None]
  - DISSEMINATED INTRAVASCULAR COAGULATION [None]
  - CANDIDA SEPSIS [None]
